FAERS Safety Report 4417138-5 (Version None)
Quarter: 2004Q3

REPORT INFORMATION
  Report Type: 
  Country: None (occurrence: None)
  Receive Date: 20040802
  Receipt Date: 20040721
  Transmission Date: 20050211
  Serious: Yes (Other)
  Sender: FDA-Public Use
  Company Number: 2004224974US

PATIENT
  Sex: Female

DRUGS (5)
  1. PROVERA [Suspect]
  2. PREMPRO [Suspect]
  3. PREMARIN [Suspect]
  4. MEDROXYPROGESTERONE [Suspect]
  5. ESTROGEN [Suspect]

REACTIONS (2)
  - BREAST CANCER FEMALE [None]
  - POSTOPERATIVE INFECTION [None]
